FAERS Safety Report 19240392 (Version 1)
Quarter: 2021Q2

REPORT INFORMATION
  Report Type: Spontaneous
  Country: FR (occurrence: FR)
  Receive Date: 20210511
  Receipt Date: 20210511
  Transmission Date: 20210717
  Serious: Yes (Other)
  Sender: FDA-Public Use
  Company Number: FR-SUN PHARMACEUTICAL INDUSTRIES LTD-2019RR-291925

PATIENT
  Age: 56 Year
  Sex: Female

DRUGS (10)
  1. XATRAL 2,5 MG, COMPRIME PELLICULE [Suspect]
     Active Substance: ALFUZOSIN
     Indication: BLADDER SPHINCTER ATONY
     Dosage: UNK
     Route: 048
     Dates: start: 201904
  2. PARACETAMOL [Suspect]
     Active Substance: ACETAMINOPHEN
     Indication: PAIN
     Dosage: UNK
     Route: 048
     Dates: start: 201904
  3. PREGABALINE MYLAN [Suspect]
     Active Substance: PREGABALIN
     Indication: PAIN IN EXTREMITY
     Dosage: UNK
     Route: 048
     Dates: start: 201904
  4. LOVENOX [Suspect]
     Active Substance: ENOXAPARIN SODIUM
     Indication: CEREBROVASCULAR ACCIDENT
     Dosage: 1 DOSAGE FORM, DAILY
     Route: 058
     Dates: start: 201904
  5. LEVETIRACETAM MYLAN PHARMA 500 MG, COMPRIME PELLICULE [Suspect]
     Active Substance: LEVETIRACETAM
     Indication: ARTERIOVENOUS MALFORMATION
     Dosage: 3 DOSAGE FORM, DAILY
     Route: 048
     Dates: start: 201904
  6. OROZAMUDOL 50 MG, COMPRIME ORODISPERSIBLE [Suspect]
     Active Substance: TRAMADOL HYDROCHLORIDE
     Indication: PAIN
     Dosage: 1 DOSAGE FORM, DAILY
     Route: 048
     Dates: start: 201904
  7. PANTOPRAZOLE MYLAN 40 MG, COMPRIME GASTRO?RESISTANT [Suspect]
     Active Substance: PANTOPRAZOLE SODIUM
     Indication: GASTROINTESTINAL DISORDER
     Dosage: 1 DOSAGE FORM, DAILY
     Route: 048
     Dates: start: 201904
  8. GLYCEROL [Suspect]
     Active Substance: GLYCERIN
     Indication: CONSTIPATION
     Dosage: UNK
     Route: 054
     Dates: start: 201904
  9. LOXEN 20 MG, COMPRIME SECABLE [Suspect]
     Active Substance: NICARDIPINE HYDROCHLORIDE
     Indication: HYPERTENSION
     Dosage: UNK
     Route: 048
     Dates: start: 201904
  10. FLUOXETINE ARROW 20 MG, G?LULE [Suspect]
     Active Substance: FLUOXETINE HYDROCHLORIDE
     Indication: ANXIETY
     Dosage: 1 DOSAGE FORM, DAILY
     Route: 048
     Dates: start: 201904

REACTIONS (1)
  - Bicytopenia [Not Recovered/Not Resolved]

NARRATIVE: CASE EVENT DATE: 201905
